FAERS Safety Report 4420847-5 (Version None)
Quarter: 2004Q3

REPORT INFORMATION
  Report Type: 
  Country: None (occurrence: None)
  Receive Date: 20040809
  Receipt Date: 20040728
  Transmission Date: 20050211
  Serious: Yes (Hospitalization)
  Sender: FDA-Public Use
  Company Number: 200417483GDDC

PATIENT
  Age: 73 Year
  Sex: Male

DRUGS (8)
  1. KETEK [Suspect]
     Indication: COUGH
     Route: 048
  2. KETEK [Suspect]
     Indication: DYSPNOEA
     Route: 048
  3. WARFARIN SODIUM [Suspect]
     Indication: HEART VALVE REPLACEMENT
     Dosage: DOSE: 7.5 MG ALTERNATING WITH 6.25 MG DAILY, WITH SOME SLIGHT ADJUSTMENTS
     Dates: start: 19860101, end: 20030507
  4. WARFARIN SODIUM [Suspect]
     Indication: THROMBOSIS PROPHYLAXIS
     Dosage: DOSE: 7.5 MG ALTERNATING WITH 6.25 MG DAILY, WITH SOME SLIGHT ADJUSTMENTS
     Dates: start: 19860101, end: 20030507
  5. LEVODOPA BENSERAZIDE HYDROCHLO [Concomitant]
     Indication: HEART VALVE REPLACEMENT
     Route: 048
  6. SELEGILINE HYDROCHLORIDE [Concomitant]
     Indication: THROMBOSIS PROPHYLAXIS
  7. ALBUTEROL IPRATROPIUM [Concomitant]
  8. BECLOMETHASONE DIPROPIONATE [Concomitant]

REACTIONS (5)
  - COUGH [None]
  - DRUG INTERACTION [None]
  - DYSPNOEA [None]
  - HAEMOPTYSIS [None]
  - INTERNATIONAL NORMALISED RATIO INCREASED [None]
